FAERS Safety Report 9523002 (Version 4)
Quarter: 2015Q1

REPORT INFORMATION
  Report Type: Report from Study
  Country: GB (occurrence: GB)
  Receive Date: 20130913
  Receipt Date: 20150325
  Transmission Date: 20150721
  Serious: Yes (Hospitalization)
  Sender: FDA-Public Use
  Company Number: GB-BAYER-2013-109844

PATIENT
  Age: 36 Year
  Sex: Male
  Weight: 100.6 kg

DRUGS (3)
  1. SORAFENIB (RAF KINASE INHIBITOR) [Suspect]
     Active Substance: SORAFENIB
     Indication: RENAL CELL CARCINOMA
     Dosage: ACTUAL DOSE GIVEN: 400 MG ALTERNATE DAYS
     Route: 048
     Dates: start: 20130131, end: 20130804
  2. SORAFENIB (RAF KINASE INHIBITOR) [Suspect]
     Active Substance: SORAFENIB
     Indication: RENAL CELL CARCINOMA
     Dosage: ACTUAL DOSE GIVEN 400 MG DAILY
     Route: 048
     Dates: start: 2013, end: 2013
  3. RAMIPRIL. [Concomitant]
     Active Substance: RAMIPRIL
     Dosage: TOTAL DAILY DOSE 5 MG
     Route: 048
     Dates: start: 20130131

REACTIONS (1)
  - Deep vein thrombosis [Recovered/Resolved]

NARRATIVE: CASE EVENT DATE: 20130806
